FAERS Safety Report 6991832-4 (Version None)
Quarter: 2010Q3

REPORT INFORMATION
  Report Type: 
  Country: None (occurrence: None)
  Receive Date: 20100916
  Receipt Date: 20100916
  Transmission Date: 20110219
  Serious: No
  Sender: FDA-Public Use
  Company Number: None

PATIENT
  Sex: Female
  Weight: 84.8226 kg

DRUGS (1)
  1. SYMBICORT [Suspect]
     Indication: ASTHMA
     Dosage: 2 PUFFS TWICE DAILY INHALATIONS BY MOUTH
     Route: 055
     Dates: start: 20100822, end: 20100909

REACTIONS (1)
  - PRODUCT PACKAGING QUANTITY ISSUE [None]
